FAERS Safety Report 18028449 (Version 1)
Quarter: 2020Q3

REPORT INFORMATION
  Report Type: Report from Study
  Country: None (occurrence: RO)
  Receive Date: 20200716
  Receipt Date: 20200716
  Transmission Date: 20201103
  Serious: Yes (Disabling)
  Sender: FDA-Public Use
  Company Number: RO-ABBVIE-20K-135-3484283-00

PATIENT
  Sex: Female

DRUGS (5)
  1. NUROFEN [Concomitant]
     Active Substance: IBUPROFEN
     Indication: PAIN
     Route: 061
     Dates: start: 2020, end: 2020
  2. HUMIRA [Suspect]
     Active Substance: ADALIMUMAB
     Indication: PSORIASIS
     Route: 058
     Dates: start: 20111215
  3. TADOR [Concomitant]
     Active Substance: DEXKETOPROFEN
     Indication: PAIN
     Dosage: 2 INJECTIONS
     Route: 051
     Dates: start: 202005
  4. METHOTREXATE. [Concomitant]
     Active Substance: METHOTREXATE
     Indication: PSORIATIC ARTHROPATHY
     Route: 051
     Dates: start: 202007
  5. NEO?ENDUSIX [Concomitant]
     Indication: PAIN
     Dosage: 2 INJECTIONS
     Route: 051
     Dates: start: 202005

REACTIONS (2)
  - Arthralgia [Not Recovered/Not Resolved]
  - Mobility decreased [Not Recovered/Not Resolved]

NARRATIVE: CASE EVENT DATE: 2020
